FAERS Safety Report 8016275-6 (Version None)
Quarter: 2011Q4

REPORT INFORMATION
  Report Type: 
  Country: None (occurrence: None)
  Receive Date: 20111230
  Receipt Date: 20111222
  Transmission Date: 20120403
  Serious: Yes (Hospitalization, Other)
  Sender: FDA-Public Use
  Company Number: US-MERCK-1103USA01243

PATIENT
  Age: 68 Year
  Sex: Female

DRUGS (4)
  1. FOSAMAX [Suspect]
     Indication: OSTEOPOROSIS
     Route: 048
     Dates: end: 20100101
  2. OMEPRAZOLE [Concomitant]
     Route: 065
  3. FOSAMAX [Suspect]
     Route: 048
     Dates: start: 20090301, end: 20091101
  4. FOSAMAX PLUS D [Suspect]
     Indication: OSTEOPOROSIS
     Route: 048
     Dates: start: 20060601

REACTIONS (60)
  - BACK PAIN [None]
  - DIARRHOEA [None]
  - PARATHYROID TUMOUR BENIGN [None]
  - ADVERSE DRUG REACTION [None]
  - DYSPHAGIA [None]
  - HYPOPARATHYROIDISM [None]
  - PARAESTHESIA [None]
  - ARTHRALGIA [None]
  - CATARACT [None]
  - CHILLS [None]
  - FALL [None]
  - UTERINE DISORDER [None]
  - ROAD TRAFFIC ACCIDENT [None]
  - POLYDIPSIA [None]
  - HYPOAESTHESIA [None]
  - HYPERTENSION [None]
  - FEMUR FRACTURE [None]
  - DYSLIPIDAEMIA [None]
  - ARTHROPATHY [None]
  - VITAMIN D DEFICIENCY [None]
  - BRUXISM [None]
  - PAIN IN EXTREMITY [None]
  - CHONDROCALCINOSIS [None]
  - ASTHENIA [None]
  - SCIATICA [None]
  - HYPERCALCAEMIA [None]
  - PAIN [None]
  - PATELLOFEMORAL PAIN SYNDROME [None]
  - HYPERPARATHYROIDISM PRIMARY [None]
  - DYSPNOEA [None]
  - ACQUIRED OESOPHAGEAL WEB [None]
  - POLYURIA [None]
  - HYPERLIPIDAEMIA [None]
  - HIATUS HERNIA [None]
  - APPENDIX DISORDER [None]
  - RENAL FAILURE CHRONIC [None]
  - TIBIA FRACTURE [None]
  - BALANCE DISORDER [None]
  - RIB FRACTURE [None]
  - POLYP COLORECTAL [None]
  - LIGAMENT INJURY [None]
  - JOINT EFFUSION [None]
  - GASTROENTERITIS [None]
  - ANAEMIA POSTOPERATIVE [None]
  - GALLBLADDER DISORDER [None]
  - SYNOVIAL CYST [None]
  - OSTEOARTHRITIS [None]
  - KYPHOSIS [None]
  - JOINT INJURY [None]
  - FATIGUE [None]
  - ORAL DISCOMFORT [None]
  - HYPERCHOLESTEROLAEMIA [None]
  - GASTROOESOPHAGEAL REFLUX DISEASE [None]
  - BLOOD CALCIUM INCREASED [None]
  - ROTATOR CUFF SYNDROME [None]
  - FLUID RETENTION [None]
  - DRY EYE [None]
  - CONSTIPATION [None]
  - VASCULAR CALCIFICATION [None]
  - SCOLIOSIS [None]
